FAERS Safety Report 18716223 (Version 1)
Quarter: 2021Q1

REPORT INFORMATION
  Report Type: Spontaneous
  Country: US (occurrence: US)
  Receive Date: 20210107
  Receipt Date: 20210107
  Transmission Date: 20210419
  Serious: Yes (Death)
  Sender: FDA-Public Use
  Company Number: None

PATIENT
  Age: 72 Year
  Sex: Male

DRUGS (19)
  1. METOPROLOL SUCCINATE ER [Concomitant]
     Active Substance: METOPROLOL SUCCINATE
  2. OMEPRAZOLE. [Concomitant]
     Active Substance: OMEPRAZOLE
  3. ASPIRIN 81 [Concomitant]
     Active Substance: ASPIRIN
  4. LASIX [Concomitant]
     Active Substance: FUROSEMIDE
  5. METFORMIN HCL [Concomitant]
     Active Substance: METFORMIN HYDROCHLORIDE
  6. SYNTHROID [Concomitant]
     Active Substance: LEVOTHYROXINE SODIUM
  7. IBRANCE [Suspect]
     Active Substance: PALBOCICLIB
     Route: 048
  8. GLUCOSAMINE?CHONDROITIN?MSM [Concomitant]
  9. LISINOPRIL. [Concomitant]
     Active Substance: LISINOPRIL
  10. ALLOPURINOL. [Concomitant]
     Active Substance: ALLOPURINOL
  11. FISH OIL [Concomitant]
     Active Substance: FISH OIL
  12. NORCO [Concomitant]
     Active Substance: ACETAMINOPHEN\HYDROCODONE BITARTRATE
  13. AMARYL [Concomitant]
     Active Substance: GLIMEPIRIDE
  14. ELIQUIS [Concomitant]
     Active Substance: APIXABAN
  15. FLONASE ALLERGY RELIEF [Concomitant]
     Active Substance: FLUTICASONE PROPIONATE
  16. NORVASC [Concomitant]
     Active Substance: AMLODIPINE BESYLATE
  17. LIPITOR [Concomitant]
     Active Substance: ATORVASTATIN CALCIUM
  18. NITROSTAT [Concomitant]
     Active Substance: NITROGLYCERIN
  19. ONDANSETRON [Concomitant]
     Active Substance: ONDANSETRON

REACTIONS (1)
  - Death [None]

NARRATIVE: CASE EVENT DATE: 20210106
